FAERS Safety Report 7153266-1 (Version None)
Quarter: 2010Q4

REPORT INFORMATION
  Report Type: 
  Country: None (occurrence: None)
  Receive Date: 20101213
  Receipt Date: 20101203
  Transmission Date: 20110411
  Serious: Yes (Other)
  Sender: FDA-Public Use
  Company Number: AU-GENZYME-THYM-1002158

PATIENT
  Age: 18 Year
  Sex: Female

DRUGS (4)
  1. THYMOGLOBULIN [Suspect]
     Indication: BONE MARROW CONDITIONING REGIMEN
     Dosage: UNK
  2. CYCLOPHOSPHAMIDE [Concomitant]
     Indication: BONE MARROW CONDITIONING REGIMEN
  3. TACROLIMUS [Concomitant]
     Indication: BONE MARROW CONDITIONING REGIMEN
  4. TOTAL BODY IRRADIATION [Concomitant]
     Indication: BONE MARROW CONDITIONING REGIMEN

REACTIONS (2)
  - CHRONIC GRAFT VERSUS HOST DISEASE [None]
  - THROMBOTIC MICROANGIOPATHY [None]
